FAERS Safety Report 5061125-3 (Version None)
Quarter: 2006Q3

REPORT INFORMATION
  Report Type: 
  Country: None (occurrence: None)
  Receive Date: 20060720
  Receipt Date: 20060705
  Transmission Date: 20061208
  Serious: Yes (Other)
  Sender: FDA-Public Use
  Company Number: 2006-BP-07738RO

PATIENT
  Age: 9 Year
  Sex: Female

DRUGS (6)
  1. CYCLOPHOSPHAMIDE [Suspect]
     Indication: CHEMOTHERAPY
  2. DACTINOMYCIN [Suspect]
     Indication: CHEMOTHERAPY
  3. VINCRISTINE [Suspect]
     Indication: CHEMOTHERAPY
  4. DOXORUBICIN HCL [Suspect]
     Indication: CHEMOTHERAPY
  5. ETOPOSIDE [Suspect]
     Indication: CHEMOTHERAPY
  6. CARBOPLATIN [Suspect]
     Indication: CHEMOTHERAPY

REACTIONS (2)
  - METASTASES TO LUNG [None]
  - RENAL CELL CARCINOMA STAGE UNSPECIFIED [None]
